FAERS Safety Report 23441926 (Version 2)
Quarter: 2024Q1

REPORT INFORMATION
  Report Type: Spontaneous
  Country: DE (occurrence: DE)
  Receive Date: 20240125
  Receipt Date: 20240207
  Transmission Date: 20240409
  Serious: Yes (Other)
  Sender: FDA-Public Use
  Company Number: DE-002147023-NVSC2024DE016445

PATIENT
  Age: 15 Year
  Sex: Male

DRUGS (2)
  1. OXCARBAZEPINE [Suspect]
     Active Substance: OXCARBAZEPINE
     Indication: Hereditary ataxia
     Dosage: 150 MG, QD
     Route: 065
  2. ACETAZOLAMIDE [Suspect]
     Active Substance: ACETAZOLAMIDE
     Indication: Ataxia
     Dosage: UNK
     Route: 065

REACTIONS (3)
  - Hereditary ataxia [Unknown]
  - Condition aggravated [Unknown]
  - Product use in unapproved indication [Unknown]
